FAERS Safety Report 24545484 (Version 1)
Quarter: 2024Q4

REPORT INFORMATION
  Report Type: Spontaneous
  Country: US (occurrence: US)
  Receive Date: 20241024
  Receipt Date: 20241024
  Transmission Date: 20250115
  Serious: Yes (Hospitalization, Other)
  Sender: DR REDDYS
  Company Number: US-DRL-USA-LIT/USA/24/0015653

PATIENT
  Age: 69 Year
  Sex: Male

DRUGS (6)
  1. IBUPROFEN [Suspect]
     Active Substance: IBUPROFEN
     Indication: Pericarditis
  2. IBUPROFEN [Suspect]
     Active Substance: IBUPROFEN
  3. COLCHICINE [Suspect]
     Active Substance: COLCHICINE
     Indication: Pericarditis
  4. PREDNISONE [Concomitant]
     Active Substance: PREDNISONE
     Indication: Pericarditis
     Dosage: WITH A TAPERING SCHEDULE EVERY 2 TO 4 WEEKS FOR PRESUMED IDIOPATHIC PERICARDITIS
  5. PREDNISONE [Concomitant]
     Active Substance: PREDNISONE
     Dosage: WITH A TAPERING SCHEDULE EVERY 2 TO 4 WEEKS FOR PRESUMED IDIOPATHIC PERICARDITIS
  6. PREDNISONE [Concomitant]
     Active Substance: PREDNISONE
     Dosage: WITH A TAPERING SCHEDULE EVERY 2 TO 4 WEEKS FOR PRESUMED IDIOPATHIC PERICARDITIS

REACTIONS (1)
  - Drug ineffective for unapproved indication [Unknown]
